FAERS Safety Report 11253336 (Version 2)
Quarter: 2015Q3

REPORT INFORMATION
  Report Type: Spontaneous
  Country: FR (occurrence: None)
  Receive Date: 20150707
  Receipt Date: 20150717
  Transmission Date: 20151125
  Serious: Yes (Life-Threatening)
  Sender: FDA-Public Use
  Company Number: CO-UX-FR-2015-014

PATIENT
  Age: 85 Year
  Sex: Male

DRUGS (11)
  1. ALDACTAZINE [Suspect]
     Active Substance: ALTHIAZIDE\SPIRONOLACTONE
     Indication: PRODUCT USED FOR UNKNOWN INDICATION
  2. PARACETAMOL [Concomitant]
     Active Substance: ACETAMINOPHEN
  3. CELECTOL [Suspect]
     Active Substance: CELIPROLOL HYDROCHLORIDE
     Indication: PRODUCT USED FOR UNKNOWN INDICATION
     Route: 048
  4. PROZAC [Suspect]
     Active Substance: FLUOXETINE HYDROCHLORIDE
     Indication: DEPRESSION
     Dates: start: 201505, end: 20150609
  5. LEVOTHYROX (LEVOTHYROXINE SODIUM) [Concomitant]
     Active Substance: LEVOTHYROXINE SODIUM
  6. CIPROFLOXACIN (UNKNOWN) [Suspect]
     Active Substance: CIPROFLOXACIN
     Indication: URINARY TRACT INFECTION
     Dates: start: 20150608, end: 20150609
  7. XANAX [Suspect]
     Active Substance: ALPRAZOLAM
     Indication: DEPRESSION
     Dates: start: 201503, end: 20150609
  8. RIVOTRIL [Concomitant]
     Active Substance: CLONAZEPAM
  9. PLAVIX [Concomitant]
     Active Substance: CLOPIDOGREL BISULFATE
  10. XATRAL LP [Suspect]
     Active Substance: ALFUZOSIN
     Indication: BENIGN PROSTATIC HYPERPLASIA
     Route: 048
     Dates: start: 20150608, end: 20150609
  11. PRODILANTIN (FOSPHENYTOIN SODIUM) [Concomitant]

REACTIONS (17)
  - Hyponatraemia [None]
  - Urine abnormality [None]
  - Aspiration [None]
  - Inappropriate antidiuretic hormone secretion [None]
  - Tongue biting [None]
  - Urinary incontinence [None]
  - VIIth nerve paralysis [None]
  - Hypomagnesaemia [None]
  - Cell death [None]
  - Coma [None]
  - Proteinuria [None]
  - Asthenia [None]
  - Nystagmus [None]
  - Hypochloraemia [None]
  - Hypokalaemia [None]
  - Vomiting [None]
  - Hepatic failure [None]

NARRATIVE: CASE EVENT DATE: 20150618
